FAERS Safety Report 9931583 (Version 1)
Quarter: 2014Q1

REPORT INFORMATION
  Report Type: Spontaneous
  Country: GB (occurrence: None)
  Receive Date: 20140224
  Receipt Date: 20140224
  Transmission Date: 20141002
  Serious: Yes (Life-Threatening, Other)
  Sender: FDA-Public Use
  Company Number: FK201400557

PATIENT
  Age: 33 Year
  Sex: Female

DRUGS (1)
  1. DOXYCYCLINE [Suspect]
     Indication: ACNE
     Dosage: ONE TIME

REACTIONS (7)
  - Suicidal ideation [None]
  - Mood swings [None]
  - Disinhibition [None]
  - Irritability [None]
  - Depressed mood [None]
  - Mental status changes [None]
  - Nausea [None]
